FAERS Safety Report 21340980 (Version 1)
Quarter: 2022Q3

REPORT INFORMATION
  Report Type: Other
  Country: US (occurrence: None)
  Receive Date: 20220916
  Receipt Date: 20220916
  Transmission Date: 20221026
  Serious: Yes (Other)
  Sender: FDA-Public Use
  Company Number: US-ROCHE-1358741

PATIENT
  Sex: Male

DRUGS (8)
  1. CELLCEPT [Suspect]
     Active Substance: MYCOPHENOLATE MOFETIL
     Indication: Pemphigus
     Route: 048
     Dates: start: 200903
  2. CELLCEPT [Suspect]
     Active Substance: MYCOPHENOLATE MOFETIL
     Dosage: 2 TABLET AM 3 TABLET HS. INCOMPLETE PRESCRIPTION: NO FREQUENCY/INTERVAL
     Route: 048
  3. CELLCEPT [Suspect]
     Active Substance: MYCOPHENOLATE MOFETIL
     Route: 048
  4. CELLCEPT [Suspect]
     Active Substance: MYCOPHENOLATE MOFETIL
     Dosage: 90 DAYS SUPPLY, REFILLS: 3 TIMES
     Route: 048
  5. CELLCEPT [Suspect]
     Active Substance: MYCOPHENOLATE MOFETIL
     Dosage: FOR 20 YEARS
     Route: 048
  6. METHOTREXATE [Concomitant]
     Active Substance: METHOTREXATE
  7. IMURAN [Concomitant]
     Active Substance: AZATHIOPRINE
     Dates: start: 200803, end: 200904
  8. PREDNISONE [Concomitant]
     Active Substance: PREDNISONE

REACTIONS (4)
  - Herpes zoster [Unknown]
  - Pemphigus [Unknown]
  - Condition aggravated [Unknown]
  - Off label use [Unknown]
